FAERS Safety Report 23933857 (Version 2)
Quarter: 2024Q2

REPORT INFORMATION
  Report Type: Spontaneous
  Country: ZA (occurrence: ZA)
  Receive Date: 20240603
  Receipt Date: 20240607
  Transmission Date: 20240716
  Serious: Yes (Hospitalization, Other)
  Sender: FDA-Public Use
  Company Number: ZA-GLENMARK PHARMACEUTICALS-2024GMK091063

PATIENT

DRUGS (1)
  1. POTASSIUM HYDROXIDE [Suspect]
     Active Substance: POTASSIUM HYDROXIDE
     Indication: Molluscum contagiosum
     Dosage: UNK
     Route: 061
     Dates: start: 20240507, end: 20240507

REACTIONS (8)
  - Application site vesicles [Recovered/Resolved]
  - Application site discolouration [Unknown]
  - Application site pain [Recovered/Resolved]
  - Application site exfoliation [Unknown]
  - Skin wound [Recovered/Resolved]
  - Skin injury [Recovered/Resolved]
  - Pruritus [Recovered/Resolved]
  - Product use issue [Unknown]

NARRATIVE: CASE EVENT DATE: 20240507
